FAERS Safety Report 9472948 (Version 1)
Quarter: 2013Q3

REPORT INFORMATION
  Report Type: Spontaneous
  Country: US (occurrence: US)
  Receive Date: 20130823
  Receipt Date: 20130823
  Transmission Date: 20140515
  Serious: No
  Sender: FDA-Public Use
  Company Number: US-BRISTOL-MYERS SQUIBB COMPANY-17254673

PATIENT
  Age: 57 Year
  Sex: Female
  Weight: 59.86 kg

DRUGS (11)
  1. SPRYCEL (CML) TABS 100 MG [Suspect]
     Dosage: DOSE REDUCED TO 70 MG.
     Dates: start: 20121001
  2. KLONOPIN [Concomitant]
  3. POTASSIUM [Concomitant]
  4. PAXIL [Concomitant]
  5. MAGNESIUM [Concomitant]
  6. CARVEDILOL [Concomitant]
  7. CYTOMEL [Concomitant]
  8. CALCIUM [Concomitant]
  9. VITAMIN D [Concomitant]
  10. SYNTHROID [Concomitant]
  11. PROBIOTICA [Concomitant]

REACTIONS (1)
  - Rash [Unknown]
